FAERS Safety Report 8383238-0 (Version None)
Quarter: 2012Q2

REPORT INFORMATION
  Report Type: 
  Country: None (occurrence: None)
  Receive Date: 20120522
  Receipt Date: 20120507
  Transmission Date: 20120825
  Serious: Yes (Death, Other)
  Sender: FDA-Public Use
  Company Number: JP-2011-13217

PATIENT
  Age: 58 Year
  Sex: Male
  Weight: 60 kg

DRUGS (20)
  1. AMIODARONE HCL [Suspect]
     Indication: CARDIAC FAILURE
     Dosage: 100 MG MILLIGRAM(S), BID, 100 MG MILLIGRAM(S), QD, 100 MG MILLIGRAM(S), BID
     Dates: start: 20111115, end: 20111124
  2. AMIODARONE HCL [Suspect]
     Indication: CARDIAC FAILURE
     Dosage: 100 MG MILLIGRAM(S), BID, 100 MG MILLIGRAM(S), QD, 100 MG MILLIGRAM(S), BID
     Dates: start: 20111125, end: 20111129
  3. AMIODARONE HCL [Suspect]
     Indication: CARDIAC FAILURE
     Dosage: 100 MG MILLIGRAM(S), BID, 100 MG MILLIGRAM(S), QD, 100 MG MILLIGRAM(S), BID
     Dates: start: 20111130, end: 20111212
  4. DOBUPUM (DOBUTAMINE HYDROCHLORIDE) INJECTION [Concomitant]
  5. HANP (CARPERITIDE) INJECTION [Suspect]
     Indication: CARDIAC FAILURE
     Dosage: UNK,IV DRIP; UNK UNK, DAILY DOSE, IVP, 0.1 UG/KG/MIN, DAILY DOSE, IV DRIP, 0.15 UG/KG/MIN, DAILY DOS
     Route: 041
     Dates: start: 20111210, end: 20111210
  6. HANP (CARPERITIDE) INJECTION [Suspect]
     Indication: CARDIAC FAILURE
     Dosage: UNK,IV DRIP; UNK UNK, DAILY DOSE, IVP, 0.1 UG/KG/MIN, DAILY DOSE, IV DRIP, 0.15 UG/KG/MIN, DAILY DOS
     Route: 041
     Dates: start: 20111207, end: 20111208
  7. HANP (CARPERITIDE) INJECTION [Suspect]
     Indication: CARDIAC FAILURE
     Dosage: UNK,IV DRIP; UNK UNK, DAILY DOSE, IVP, 0.1 UG/KG/MIN, DAILY DOSE, IV DRIP, 0.15 UG/KG/MIN, DAILY DOS
     Route: 041
     Dates: start: 20111211, end: 20111213
  8. HANP (CARPERITIDE) INJECTION [Suspect]
     Indication: CARDIAC FAILURE
     Dosage: UNK,IV DRIP; UNK UNK, DAILY DOSE, IVP, 0.1 UG/KG/MIN, DAILY DOSE, IV DRIP, 0.15 UG/KG/MIN, DAILY DOS
     Route: 041
     Dates: start: 20111209, end: 20111209
  9. SAWACILLIN (AMOXICILLIN TRIHYDRATE) CAPSULE [Concomitant]
  10. THYRADIN S (LEVOTHYROXINE SODIUM) TABLET [Concomitant]
  11. DOBUPUM (DOBUTAMINE HYDROCHLORIDE) INJECTION [Concomitant]
  12. SAMSCA [Suspect]
     Indication: CARDIAC FAILURE
     Dosage: 7.5 MG MILLIGRAM(S), DAILY DOSE, ORAL, 15 MG MILLIGRAM(S), DAILY DOSE, ORAL
     Route: 048
     Dates: start: 20111211, end: 20111212
  13. SAMSCA [Suspect]
     Indication: CARDIAC FAILURE
     Dosage: 7.5 MG MILLIGRAM(S), DAILY DOSE, ORAL, 15 MG MILLIGRAM(S), DAILY DOSE, ORAL
     Route: 048
     Dates: start: 20111116, end: 20111210
  14. WARFARIN SODIUM [Suspect]
     Indication: THROMBOSIS PROPHYLAXIS
     Dosage: 1.5 MG MILLIGRAM(S), QD, ORAL, UNK, ORAL
     Route: 048
     Dates: start: 20111209
  15. WARFARIN SODIUM [Suspect]
     Indication: THROMBOSIS
     Dosage: 1.5 MG MILLIGRAM(S), QD, ORAL, UNK, ORAL
     Route: 048
     Dates: start: 20111209
  16. WARFARIN SODIUM [Suspect]
     Indication: THROMBOSIS PROPHYLAXIS
     Dosage: 1.5 MG MILLIGRAM(S), QD, ORAL, UNK, ORAL
     Route: 048
     Dates: start: 20111129, end: 20111208
  17. WARFARIN SODIUM [Suspect]
     Indication: THROMBOSIS
     Dosage: 1.5 MG MILLIGRAM(S), QD, ORAL, UNK, ORAL
     Route: 048
     Dates: start: 20111129, end: 20111208
  18. SELARA (EPLERENONE) TABLET [Concomitant]
  19. DOBUPUM (DOBUTAMINE HYDROCHLORIDE) INJECTION [Concomitant]
  20. DOPAMINE HYDROCHLORIDE [Concomitant]

REACTIONS (8)
  - COAGULATION TEST ABNORMAL [None]
  - HEPATITIS FULMINANT [None]
  - CHEST DISCOMFORT [None]
  - URINE OUTPUT DECREASED [None]
  - MALAISE [None]
  - RENAL IMPAIRMENT [None]
  - BLOOD POTASSIUM INCREASED [None]
  - WEIGHT INCREASED [None]
